FAERS Safety Report 6646688-6 (Version None)
Quarter: 2010Q1

REPORT INFORMATION
  Report Type: 
  Country: None (occurrence: None)
  Receive Date: 20100323
  Receipt Date: 20100318
  Transmission Date: 20100710
  Serious: Yes (Other)
  Sender: FDA-Public Use
  Company Number: US-JNJCH-2010006934

PATIENT
  Age: 56 Year
  Sex: Female
  Weight: 53.5 kg

DRUGS (1)
  1. CHILDREN'S BENADRYL ALLERGY [Suspect]
     Indication: LACRIMATION INCREASED
     Dosage: TEXT:2 CAPFULS ONCE
     Route: 048
     Dates: start: 20100317, end: 20100317

REACTIONS (4)
  - EXPIRED DRUG ADMINISTERED [None]
  - HYPOAESTHESIA ORAL [None]
  - PARALYSIS [None]
  - WRONG DRUG ADMINISTERED [None]
